FAERS Safety Report 5822723-X (Version None)
Quarter: 2008Q3

REPORT INFORMATION
  Report Type: 
  Country: None (occurrence: None)
  Receive Date: 20080725
  Receipt Date: 20071101
  Transmission Date: 20090109
  Serious: No
  Sender: FDA-Public Use
  Company Number: US-AMGEN-KDL245006

PATIENT
  Age: 56 Year
  Sex: Male
  Weight: 87.2 kg

DRUGS (3)
  1. PROCRIT [Suspect]
     Indication: PRE-EXISTING DISEASE
  2. PEG-INTRON [Concomitant]
     Route: 058
     Dates: start: 20070228, end: 20070727
  3. RIBAVIRIN [Concomitant]
     Route: 048
     Dates: start: 20070228, end: 20070727

REACTIONS (9)
  - ANOREXIA [None]
  - ASTHENIA [None]
  - BONE PAIN [None]
  - CHILLS [None]
  - INFLUENZA [None]
  - INSOMNIA [None]
  - VIRAL LOAD INCREASED [None]
  - VOMITING [None]
  - WEIGHT DECREASED [None]
